FAERS Safety Report 8015332-8 (Version None)
Quarter: 2011Q4

REPORT INFORMATION
  Report Type: 
  Country: None (occurrence: None)
  Receive Date: 20111223
  Receipt Date: 20111214
  Transmission Date: 20120403
  Serious: Yes (Hospitalization)
  Sender: FDA-Public Use
  Company Number: 2011HGS-002981

PATIENT
  Age: 43 Year
  Sex: Female
  Weight: 65.7716 kg

DRUGS (4)
  1. CALCIUM SUPPLEMENT (CALCIUM) [Concomitant]
  2. PREDNISONE TAB [Concomitant]
  3. BENLYSTA [Suspect]
     Indication: SYSTEMIC LUPUS ERYTHEMATOSUS
     Dosage: 10 MG/KG, 1 IN 28 D, INTRAVENOUS
     Route: 042
     Dates: start: 20110921
  4. TRAZODONE HCL [Concomitant]

REACTIONS (2)
  - ROAD TRAFFIC ACCIDENT [None]
  - SPINAL FRACTURE [None]
